FAERS Safety Report 6284602-6 (Version None)
Quarter: 2009Q3

REPORT INFORMATION
  Report Type: 
  Country: None (occurrence: None)
  Receive Date: 20090727
  Receipt Date: 20090624
  Transmission Date: 20100115
  Serious: No
  Sender: FDA-Public Use
  Company Number: US-ALEXION-A200900541

PATIENT
  Sex: Male

DRUGS (3)
  1. SOLIRIS [Suspect]
     Indication: PAROXYSMAL NOCTURNAL HAEMOGLOBINURIA
     Dosage: 600 MG, SINGLE
     Route: 042
     Dates: start: 20090126, end: 20090126
  2. SOLIRIS [Suspect]
     Dosage: 600 MG, QW X4
     Route: 042
     Dates: start: 20090201, end: 20090301
  3. SOLIRIS [Suspect]
     Dosage: 900 MG, Q2W
     Route: 042

REACTIONS (2)
  - ASTHENIA [None]
  - HAEMOGLOBIN DECREASED [None]
